FAERS Safety Report 12682889 (Version 1)
Quarter: 2016Q3

REPORT INFORMATION
  Report Type: Spontaneous
  Country: US (occurrence: None)
  Receive Date: 20160824
  Receipt Date: 20160824
  Transmission Date: 20161109
  Serious: Yes (Other)
  Sender: FDA-Public Use
  Company Number: None

PATIENT
  Age: 66 Year
  Sex: Female
  Weight: 76.66 kg

DRUGS (11)
  1. OSTADERM--V [Concomitant]
  2. MULTI-VITAMIN [Concomitant]
     Active Substance: .ALPHA.-TOCOPHEROL ACETATE, DL-\ASCORBIC ACID\CYANOCOBALAMIN\FLUORIDE ION\FOLIC ACID\NIACIN\PYRIDOXINE\RIBOFLAVIN\THIAMINE\VITAMIN A\VITAMIN D
  3. LEVATHYROXIN [Concomitant]
  4. ASPRIRIN [Concomitant]
  5. RIZATRIPTAN BENZOATE, 10 MG EMCURE PHARMACEUTICALS LTD [Suspect]
     Active Substance: RIZATRIPTAN BENZOATE
     Indication: MIGRAINE
     Dosage: 18 TABLET(S) AS NEEDED TAKEN BY MOUTH
     Route: 048
     Dates: start: 20160718, end: 20160718
  6. CRANBERRY. [Concomitant]
     Active Substance: CRANBERRY
  7. HYDROCHLORATHIAZIDE [Concomitant]
     Active Substance: HYDROCHLOROTHIAZIDE
  8. VITAMIN D3 [Concomitant]
     Active Substance: CHOLECALCIFEROL
  9. GLUCOASMINE CHODROITIN [Concomitant]
  10. KRILL OIL [Concomitant]
     Active Substance: DIETARY SUPPLEMENT
  11. CALCIUM W MAGNESIUM [Concomitant]

REACTIONS (2)
  - Chest discomfort [None]
  - Myocardial infarction [None]

NARRATIVE: CASE EVENT DATE: 20160729
